FAERS Safety Report 10308154 (Version 2)
Quarter: 2014Q3

REPORT INFORMATION
  Report Type: Spontaneous
  Country: FR (occurrence: FR)
  Receive Date: 20140716
  Receipt Date: 20140909
  Transmission Date: 20150326
  Serious: Yes (Hospitalization, Disabling, Other)
  Sender: FDA-Public Use
  Company Number: FR-PFIZER INC-2014192218

PATIENT
  Age: 37 Year
  Sex: Male
  Weight: 50.7 kg

DRUGS (10)
  1. ZYVOXID [Suspect]
     Active Substance: LINEZOLID
     Indication: TUBERCULOSIS
     Dosage: 600 MG, DAILY
     Route: 048
     Dates: start: 20130609, end: 20140515
  2. PIRILENE [Concomitant]
     Active Substance: PYRAZINAMIDE
     Indication: TUBERCULOSIS
     Dosage: UNK
     Route: 048
     Dates: start: 20130609, end: 20140515
  3. LAMPRENE [Concomitant]
     Active Substance: CLOFAZIMINE
     Indication: TUBERCULOSIS
     Dosage: UNK
     Route: 048
     Dates: start: 20130609, end: 20140515
  4. SKENAN [Concomitant]
     Active Substance: MORPHINE SULFATE
     Indication: PAIN
  5. MERONEM [Concomitant]
     Active Substance: MEROPENEM
  6. AUGMENTIN [Concomitant]
     Active Substance: AMOXICILLIN\CLAVULANATE POTASSIUM
     Indication: PULMONARY TUBERCULOSIS
     Dosage: UNK
     Dates: start: 20130609
  7. ZYLORIC [Concomitant]
     Active Substance: ALLOPURINOL
  8. MIANSERIN [Concomitant]
     Active Substance: MIANSERIN
     Indication: PAIN
  9. TMC207 [Concomitant]
     Active Substance: BEDAQUILINE
     Indication: TUBERCULOSIS
     Dosage: UNK
     Route: 048
     Dates: start: 20130609, end: 20140515
  10. TIENAM [Concomitant]
     Active Substance: CILASTATIN SODIUM\IMIPENEM
     Indication: TUBERCULOSIS
     Dosage: UNK
     Dates: start: 20130609

REACTIONS (7)
  - Neuritis [Unknown]
  - Dysaesthesia [Unknown]
  - Electromyogram abnormal [Not Recovered/Not Resolved]
  - Neuropathy peripheral [Unknown]
  - Polyneuropathy [Not Recovered/Not Resolved]
  - Pain in extremity [Unknown]
  - Ulnar nerve injury [Not Recovered/Not Resolved]

NARRATIVE: CASE EVENT DATE: 20140505
